FAERS Safety Report 6594310-X (Version None)
Quarter: 2010Q1

REPORT INFORMATION
  Report Type: 
  Country: None (occurrence: None)
  Receive Date: 20100222
  Receipt Date: 20100217
  Transmission Date: 20100710
  Serious: Yes (Death)
  Sender: FDA-Public Use
  Company Number: US-CELGENEUS-163-20785-10012086

PATIENT
  Sex: Female

DRUGS (2)
  1. THALOMID [Suspect]
     Indication: MULTIPLE MYELOMA
     Route: 048
     Dates: start: 20100101, end: 20100101
  2. THALOMID [Suspect]
     Indication: PULMONARY AMYLOIDOSIS
     Route: 048
     Dates: start: 20091201

REACTIONS (4)
  - MULTIPLE MYELOMA [None]
  - PNEUMONIA [None]
  - PULMONARY AMYLOIDOSIS [None]
  - RESPIRATORY FAILURE [None]
